FAERS Safety Report 16524722 (Version 1)
Quarter: 2019Q3

REPORT INFORMATION
  Report Type: Spontaneous
  Country: GB (occurrence: GB)
  Receive Date: 20190703
  Receipt Date: 20190703
  Transmission Date: 20191004
  Serious: Yes (Disabling)
  Sender: FDA-Public Use
  Company Number: GB-TEVA-2019-GB-1071159

PATIENT
  Age: 38 Year
  Sex: Female
  Weight: 67 kg

DRUGS (1)
  1. VENLAFAXINE [Suspect]
     Active Substance: VENLAFAXINE HYDROCHLORIDE
     Indication: ANXIETY
     Dosage: VARIABLE, TAPERED DOWN FROM 150MG OVER 1.5 YEARS 2016 -2017
     Route: 048
     Dates: start: 201212

REACTIONS (19)
  - Anxiety [Unknown]
  - Mania [Unknown]
  - Abdominal pain [Unknown]
  - Fatigue [Unknown]
  - Dissociation [Unknown]
  - Nightmare [Unknown]
  - Abnormal loss of weight [Unknown]
  - Temperature regulation disorder [Unknown]
  - Diarrhoea [Unknown]
  - Insomnia [Unknown]
  - Lip swelling [Unknown]
  - Panic disorder [Unknown]
  - Hypertension [Unknown]
  - Palpitations [Unknown]
  - Influenza like illness [Unknown]
  - Suicidal ideation [Unknown]
  - Microalbuminuria [Unknown]
  - Withdrawal syndrome [Not Recovered/Not Resolved]
  - Mood swings [Unknown]

NARRATIVE: CASE EVENT DATE: 20171027
